FAERS Safety Report 5965034-4 (Version None)
Quarter: 2008Q4

REPORT INFORMATION
  Report Type: 
  Country: None (occurrence: None)
  Receive Date: 20081125
  Receipt Date: 20081114
  Transmission Date: 20090506
  Serious: Yes (Hospitalization)
  Sender: FDA-Public Use
  Company Number: PHHY2008DE28466

PATIENT
  Sex: Male

DRUGS (2)
  1. EXELON [Suspect]
     Dosage: 2X1.5 MG
     Route: 048
     Dates: start: 20081029, end: 20081105
  2. EXELON [Suspect]
     Dosage: 2X3 MG
     Route: 048
     Dates: start: 20081106

REACTIONS (1)
  - AMAUROSIS [None]
